FAERS Safety Report 8327677-2 (Version None)
Quarter: 2012Q2

REPORT INFORMATION
  Report Type: 
  Country: None (occurrence: None)
  Receive Date: 20120502
  Receipt Date: 20120426
  Transmission Date: 20120825
  Serious: Yes (Other)
  Sender: FDA-Public Use
  Company Number: HR-BAYER-2012-041185

PATIENT
  Age: 36 Year
  Sex: Female

DRUGS (10)
  1. VESICARE [Concomitant]
     Dosage: 5 MG, UNK
  2. CITALON [Concomitant]
     Dosage: 20 MG, UNK
  3. CLONAZEPAM [Concomitant]
     Dosage: 2 MG, UNK
  4. LUPOCET [Concomitant]
     Dosage: 1 DF
  5. INTERFERON BETA-1B [Suspect]
     Indication: MULTIPLE SCLEROSIS
     Dosage: UNK
     Dates: start: 20120117
  6. IBUPROFEN [Concomitant]
     Dosage: 1 MG, UNK
  7. FAMOSAN [Concomitant]
     Dosage: 20 MG, UNK
  8. LIORESAL [Concomitant]
     Dosage: 10 MG, UNK
  9. INTERFERON BETA-1B [Suspect]
     Dosage: UNK
     Dates: start: 20120223
  10. MIZAR [Concomitant]
     Dosage: 1 MG, UNK

REACTIONS (5)
  - INJECTION SITE OEDEMA [None]
  - LARYNGEAL OEDEMA [None]
  - INSOMNIA [None]
  - MALAISE [None]
  - INJECTION SITE ERYTHEMA [None]
